FAERS Safety Report 16359561 (Version 3)
Quarter: 2019Q3

REPORT INFORMATION
  Report Type: Spontaneous
  Country: US (occurrence: US)
  Receive Date: 20190528
  Receipt Date: 20190927
  Transmission Date: 20191004
  Serious: Yes (Other)
  Sender: FDA-Public Use
  Company Number: US-BIOGEN-2019BI00742829

PATIENT
  Sex: Female

DRUGS (1)
  1. TYSABRI [Suspect]
     Active Substance: NATALIZUMAB
     Indication: MULTIPLE SCLEROSIS
     Route: 065
     Dates: start: 20180327

REACTIONS (7)
  - Memory impairment [Unknown]
  - Foreign body in eye [Unknown]
  - Stress [Unknown]
  - Eye infection toxoplasmal [Unknown]
  - Confusional state [Unknown]
  - Anxiety [Unknown]
  - HIV test false positive [Unknown]
